FAERS Safety Report 14272606 (Version 1)
Quarter: 2017Q4

REPORT INFORMATION
  Report Type: Spontaneous
  Country: JP (occurrence: JP)
  Receive Date: 20171211
  Receipt Date: 20171211
  Transmission Date: 20180321
  Serious: Yes (Hospitalization)
  Sender: FDA-Public Use
  Company Number: JP-OTSUKA-2016_010393

PATIENT
  Age: 61 Year
  Sex: Female

DRUGS (3)
  1. AKINETON [Concomitant]
     Active Substance: BIPERIDEN HYDROCHLORIDE
     Indication: PRODUCT USED FOR UNKNOWN INDICATION
     Dosage: UNK, QD
     Route: 048
  2. ABILIFY [Suspect]
     Active Substance: ARIPIPRAZOLE
     Indication: SCHIZOPHRENIA
     Dosage: 12 (UNIT UNKNOWN), QD
     Route: 048
  3. AKINETON [Concomitant]
     Active Substance: BIPERIDEN HYDROCHLORIDE
     Indication: PRODUCT USED FOR UNKNOWN INDICATION
     Dosage: 1(UNIT UNKNOWN), QD
     Route: 048

REACTIONS (1)
  - Hyperglycaemia [Recovering/Resolving]

NARRATIVE: CASE EVENT DATE: 20160317
